FAERS Safety Report 9671670 (Version 2)
Quarter: 2013Q4

REPORT INFORMATION
  Report Type: Spontaneous
  Country: BR (occurrence: None)
  Receive Date: 20131104
  Receipt Date: 20131112
  Transmission Date: 20140711
  Serious: Yes (Other)
  Sender: FDA-Public Use
  Company Number: AUR-APL-2013-09107

PATIENT
  Sex: Female

DRUGS (16)
  1. AMLODIPINE (AMLODIPINE) [Suspect]
     Indication: PRODUCT USED FOR UNKNOWN INDICATION
  2. ATENOLOL (ATENOLOL) [Suspect]
     Indication: PRODUCT USED FOR UNKNOWN INDICATION
  3. SPIRONOLACTONE (SPIRONOLACTONE) [Suspect]
     Indication: PRODUCT USED FOR UNKNOWN INDICATION
  4. VENLAFAXINE HYDROCHLORIDE (VENLAFAXINE HYDROCHLORIDE) [Suspect]
     Indication: PRODUCT USED FOR UNKNOWN INDICATION
  5. OMEPRAZOLE (OMEPRAZOLE) [Suspect]
     Indication: PRODUCT USED FOR UNKNOWN INDICATION
  6. SIMVASTATIN (SIMVASTATIN) [Suspect]
     Indication: PRODUCT USED FOR UNKNOWN INDICATION
  7. ROSUVASTATIN CALCIUM [Suspect]
     Indication: PRODUCT USED FOR UNKNOWN INDICATION
  8. GLIMEPIRIDE (GLIMEPIRIDE) [Suspect]
     Indication: PRODUCT USED FOR UNKNOWN INDICATION
  9. ARADOIS [Suspect]
     Indication: PRODUCT USED FOR UNKNOWN INDICATION
  10. CLOPIN [Suspect]
     Indication: PRODUCT USED FOR UNKNOWN INDICATION
  11. ASPIRINA [Suspect]
     Indication: PRODUCT USED FOR UNKNOWN INDICATION
  12. SUSTRATE [Suspect]
     Indication: PRODUCT USED FOR UNKNOWN INDICATION
  13. VYTORIN [Suspect]
     Indication: PRODUCT USED FOR UNKNOWN INDICATION
  14. VASTAREL [Suspect]
     Indication: PRODUCT USED FOR UNKNOWN INDICATION
  15. SOMALGIN [Suspect]
     Indication: PRODUCT USED FOR UNKNOWN INDICATION
  16. RIVOTRIL (CLONAZEPAM) [Suspect]
     Indication: PRODUCT USED FOR UNKNOWN INDICATION

REACTIONS (2)
  - Cardiac disorder [None]
  - Cardiac procedure complication [None]
